FAERS Safety Report 7791582-0 (Version None)
Quarter: 2011Q4

REPORT INFORMATION
  Report Type: 
  Country: None (occurrence: None)
  Receive Date: 20111003
  Receipt Date: 20110923
  Transmission Date: 20120403
  Serious: Yes (Other)
  Sender: FDA-Public Use
  Company Number: US-US-EMD SERONO, INC.-7085413

PATIENT
  Sex: Female
  Weight: 61 kg

DRUGS (1)
  1. REBIF [Suspect]
     Indication: PRODUCT USED FOR UNKNOWN INDICATION
     Route: 058
     Dates: start: 20110513

REACTIONS (3)
  - INJECTION SITE URTICARIA [None]
  - NEPHROLITHIASIS [None]
  - INJECTION SITE ERYTHEMA [None]
